FAERS Safety Report 20294585 (Version 1)
Quarter: 2022Q1

REPORT INFORMATION
  Report Type: Spontaneous
  Country: FR (occurrence: FR)
  Receive Date: 20220104
  Receipt Date: 20220104
  Transmission Date: 20220424
  Serious: Yes (Other)
  Sender: FDA-Public Use
  Company Number: None

PATIENT
  Age: 75 Year
  Sex: Male
  Weight: 71 kg

DRUGS (1)
  1. BEVACIZUMAB [Suspect]
     Active Substance: BEVACIZUMAB
     Indication: Metastases to liver
     Dosage: 350 MILLIGRAM
     Route: 041
     Dates: start: 20210324

REACTIONS (1)
  - Anal ulcer [Not Recovered/Not Resolved]

NARRATIVE: CASE EVENT DATE: 20211001
